FAERS Safety Report 8483235-0 (Version None)
Quarter: 2012Q3

REPORT INFORMATION
  Report Type: 
  Country: None (occurrence: None)
  Receive Date: 20120702
  Receipt Date: 20120627
  Transmission Date: 20120928
  Serious: Yes (Hospitalization, Other)
  Sender: FDA-Public Use
  Company Number: US-PFIZER INC-2012125275

PATIENT
  Sex: Female

DRUGS (3)
  1. LIPITOR [Suspect]
     Dosage: UNK
     Dates: end: 20120101
  2. METFORMIN HCL [Suspect]
     Indication: DIABETES MELLITUS
     Dosage: 1000 MG, UNK
     Dates: end: 20120101
  3. ACCUPRIL [Suspect]
     Indication: HYPERTENSION
     Dosage: UNK
     Dates: end: 20120101

REACTIONS (8)
  - TREMOR [None]
  - COMA [None]
  - DISCOMFORT [None]
  - MENTAL DISORDER [None]
  - MYALGIA [None]
  - MALAISE [None]
  - AMNESIA [None]
  - ANAEMIA [None]
